FAERS Safety Report 4311618-9 (Version None)
Quarter: 2004Q1

REPORT INFORMATION
  Report Type: 
  Country: None (occurrence: None)
  Receive Date: 20040303
  Receipt Date: 20040303
  Transmission Date: 20041129
  Serious: Yes (Hospitalization)
  Sender: FDA-Public Use
  Company Number: None

PATIENT
  Age: 84 Year
  Sex: Male

DRUGS (1)
  1. OCCUVITE [Suspect]
     Indication: MACULAR DEGENERATION
     Dosage: GTTS UD OPHTHALMIC
     Route: 047
     Dates: start: 20031101, end: 20031116

REACTIONS (2)
  - HYPERSENSITIVITY [None]
  - SWELLING FACE [None]
